FAERS Safety Report 14917648 (Version 1)
Quarter: 2018Q2

REPORT INFORMATION
  Report Type: Spontaneous
  Country: FR (occurrence: FR)
  Receive Date: 20180521
  Receipt Date: 20180521
  Transmission Date: 20180711
  Serious: Yes (Other)
  Sender: FDA-Public Use
  Company Number: FR-MERCK KGAA-2048103

PATIENT
  Age: 38 Year
  Sex: Male

DRUGS (1)
  1. NOVOTHYROX [Suspect]
     Active Substance: LEVOTHYROXINE SODIUM
     Indication: PRODUCT USED FOR UNKNOWN INDICATION

REACTIONS (16)
  - Irritability [None]
  - Blood thyroid stimulating hormone abnormal [None]
  - Social avoidant behaviour [None]
  - Pruritus [None]
  - Alopecia [None]
  - Somnolence [None]
  - Insomnia [None]
  - Carcinoembryonic antigen increased [None]
  - Psychiatric symptom [None]
  - C-reactive protein increased [None]
  - Personal relationship issue [None]
  - Asthenia [None]
  - Exercise lack of [None]
  - Fatigue [None]
  - Apathy [None]
  - Rash erythematous [None]

NARRATIVE: CASE EVENT DATE: 20170608
